FAERS Safety Report 5184011-7 (Version None)
Quarter: 2006Q4

REPORT INFORMATION
  Report Type: 
  Country: None (occurrence: None)
  Receive Date: 20061220
  Receipt Date: 20060306
  Transmission Date: 20070319
  Serious: No
  Sender: FDA-Public Use
  Company Number: US-GLAXOSMITHKLINE-A0596247A

PATIENT
  Age: 73 Year
  Sex: Female

DRUGS (5)
  1. NICODERM CQ [Suspect]
  2. NICODERM CQ [Suspect]
  3. NICORETTE (MINT) [Suspect]
  4. STEROIDS [Concomitant]
  5. ALLERGY MEDICATION [Concomitant]

REACTIONS (4)
  - APPLICATION SITE ERYTHEMA [None]
  - APPLICATION SITE IRRITATION [None]
  - APPLICATION SITE PRURITUS [None]
  - PARAESTHESIA ORAL [None]
